FAERS Safety Report 4694753-5 (Version None)
Quarter: 2005Q2

REPORT INFORMATION
  Report Type: 
  Country: None (occurrence: None)
  Receive Date: 20050617
  Receipt Date: 20050608
  Transmission Date: 20051028
  Serious: Yes (Hospitalization)
  Sender: FDA-Public Use
  Company Number: IND-AE-05-SAN-031

PATIENT
  Age: 79 Year
  Sex: Female

DRUGS (2)
  1. SANCTURA [Suspect]
     Indication: HYPERTONIC BLADDER
     Dosage: 20MG - QD - ORAL
     Route: 048
     Dates: start: 20050124, end: 20050605
  2. TYLENOL [Concomitant]

REACTIONS (3)
  - BLOOD PRESSURE INCREASED [None]
  - BRAIN STEM HAEMORRHAGE [None]
  - HAEMORRHAGIC STROKE [None]
